FAERS Safety Report 18490847 (Version 1)
Quarter: 2020Q4

REPORT INFORMATION
  Report Type: Report from Study
  Country: US (occurrence: US)
  Receive Date: 20201111
  Receipt Date: 20201111
  Transmission Date: 20210114
  Serious: No
  Sender: FDA-Public Use
  Company Number: US-INCYTE CORPORATION-2020IN009626

PATIENT

DRUGS (7)
  1. JAKAFI [Suspect]
     Active Substance: RUXOLITINIB
     Dosage: 4 MILLIGRAM, QD
     Route: 065
  2. JAKAFI [Suspect]
     Active Substance: RUXOLITINIB
     Indication: POLYCYTHAEMIA VERA
     Dosage: 6 MILLIGRAM, QD
     Route: 065
  3. JAKAFI [Suspect]
     Active Substance: RUXOLITINIB
     Dosage: 3 MILLIGRAM, QD
     Route: 065
  4. JAKAFI [Suspect]
     Active Substance: RUXOLITINIB
     Dosage: 1 MILLIGRAM, QD
     Route: 065
  5. JAKAFI [Suspect]
     Active Substance: RUXOLITINIB
     Dosage: 6 MG QD 2 MG
     Route: 065
  6. JAKAFI [Suspect]
     Active Substance: RUXOLITINIB
     Dosage: 2 MILLIGRAM, QD
     Route: 065
  7. JAKAFI [Suspect]
     Active Substance: RUXOLITINIB
     Dosage: 4 MILLIGRAM, QD
     Route: 065

REACTIONS (12)
  - Decreased activity [Unknown]
  - Pruritus [Unknown]
  - Haemoglobin abnormal [Unknown]
  - Arthralgia [Unknown]
  - Fatigue [Unknown]
  - Bone pain [Unknown]
  - Haematocrit abnormal [Unknown]
  - Wrong technique in product usage process [Unknown]
  - White blood cell count increased [Unknown]
  - Platelet count abnormal [Unknown]
  - Abdominal pain [Unknown]
  - Abdominal discomfort [Unknown]
